FAERS Safety Report 8114064-5 (Version None)
Quarter: 2012Q1

REPORT INFORMATION
  Report Type: 
  Country: None (occurrence: None)
  Receive Date: 20120203
  Receipt Date: 20120125
  Transmission Date: 20120608
  Serious: Yes (Hospitalization, Other)
  Sender: FDA-Public Use
  Company Number: SE-ASTRAZENECA-2012SE05089

PATIENT
  Age: 69 Year
  Sex: Female

DRUGS (4)
  1. ARIMIDEX [Suspect]
     Route: 048
  2. ARIMIDEX [Suspect]
     Route: 048
     Dates: start: 20051001, end: 20090701
  3. DIPENTUM [Concomitant]
     Indication: COLITIS ULCERATIVE
  4. TAMOXIFEN CITRATE [Suspect]
     Route: 048
     Dates: start: 20090701

REACTIONS (4)
  - HYPERCALCAEMIA [None]
  - BLOOD PARATHYROID HORMONE INCREASED [None]
  - FLUID RETENTION [None]
  - OSTEOPENIA [None]
